FAERS Safety Report 4265955-7 (Version None)
Quarter: 2004Q1

REPORT INFORMATION
  Report Type: 
  Country: None (occurrence: None)
  Receive Date: 20040106
  Receipt Date: 20031223
  Transmission Date: 20041129
  Serious: Yes (Life-Threatening, Other)
  Sender: FDA-Public Use
  Company Number: 2003126092

PATIENT

DRUGS (1)
  1. UNASYN [Suspect]
     Indication: ILL-DEFINED DISORDER
     Dosage: 4.5 GRAM (TID), INTRAVENOUS
     Route: 042
     Dates: start: 20031221

REACTIONS (3)
  - ACUTE RESPIRATORY DISTRESS SYNDROME [None]
  - BRAIN CONTUSION [None]
  - SEPTIC SHOCK [None]
